FAERS Safety Report 14034328 (Version 1)
Quarter: 2017Q4

REPORT INFORMATION
  Report Type: Report from Study
  Country: US (occurrence: US)
  Receive Date: 20171003
  Receipt Date: 20171003
  Transmission Date: 20180321
  Serious: Yes (Hospitalization)
  Sender: FDA-Public Use
  Company Number: US-EISAI MEDICAL RESEARCH-EC-2017-031735

PATIENT
  Age: 56 Year
  Sex: Female
  Weight: 81.5 kg

DRUGS (8)
  1. DELTASONE [Concomitant]
     Active Substance: PREDNISONE
  2. FASLODEX [Concomitant]
     Active Substance: FULVESTRANT
  3. CALCIUM CARBONATE. [Concomitant]
     Active Substance: CALCIUM CARBONATE
  4. DECADRON [Concomitant]
     Active Substance: DEXAMETHASONE
  5. ERIBULIN [Suspect]
     Active Substance: ERIBULIN
     Indication: BREAST CANCER METASTATIC
     Route: 041
     Dates: start: 20170721, end: 20170927
  6. ATIVAN [Concomitant]
     Active Substance: LORAZEPAM
  7. PEPCID [Concomitant]
     Active Substance: FAMOTIDINE
  8. MG-OX [Concomitant]

REACTIONS (4)
  - Aspartate aminotransferase increased [Unknown]
  - Alanine aminotransferase increased [Unknown]
  - Blood alkaline phosphatase increased [Unknown]
  - Blood bilirubin increased [Unknown]

NARRATIVE: CASE EVENT DATE: 20170928
